FAERS Safety Report 16499414 (Version 2)
Quarter: 2019Q3

REPORT INFORMATION
  Report Type: Report from Study
  Country: DE (occurrence: DE)
  Receive Date: 20190701
  Receipt Date: 20190923
  Transmission Date: 20191004
  Serious: Yes (Death, Hospitalization, Other)
  Sender: FDA-Public Use
  Company Number: DE-CLOVIS ONCOLOGY-CLO-2018-001246

PATIENT

DRUGS (20)
  1. FLUOXETIN [Concomitant]
     Active Substance: FLUOXETINE HYDROCHLORIDE
     Dosage: UNK
     Dates: start: 2010
  2. SYMPHYTUM COMP [Concomitant]
     Dosage: UNK
     Dates: start: 2014
  3. RUCAPARIB [Suspect]
     Active Substance: RUCAPARIB
     Indication: PROSTATE CANCER METASTATIC
     Dosage: 1200 MG, UNK
     Dates: start: 20180615, end: 20180727
  4. NIVOLUMAB [Suspect]
     Active Substance: NIVOLUMAB
     Indication: PROSTATE CANCER METASTATIC
     Dosage: 480 MG, UNK
     Route: 042
     Dates: start: 20180615, end: 20180720
  5. AMLODIPIN                          /00972401/ [Concomitant]
     Active Substance: AMLODIPINE BESYLATE
     Dosage: UNK
     Dates: start: 2013
  6. BASENPULVER                        /07326901/ [Concomitant]
     Dosage: UNK
     Dates: start: 2014
  7. CURCUMIN [Concomitant]
     Active Substance: CURCUMIN
     Dosage: UNK
     Dates: start: 2014
  8. L-THYROX [Concomitant]
     Active Substance: LEVOTHYROXINE SODIUM
     Dosage: UNK
     Dates: start: 1995
  9. LEMON C [Concomitant]
     Dosage: UNK
     Dates: start: 2014
  10. PANTOZOL [Concomitant]
     Active Substance: PANTOPRAZOLE SODIUM
     Dosage: UNK
     Dates: start: 20180619
  11. CALCIUM [Concomitant]
     Active Substance: CALCIUM
     Dosage: UNK
     Dates: start: 2014
  12. GINSENG                            /01384001/ [Concomitant]
     Active Substance: ASIAN GINSENG
     Dosage: UNK
     Dates: start: 2014
  13. MAGNESIUM [Concomitant]
     Active Substance: MAGNESIUM
     Dosage: UNK
     Dates: start: 201805
  14. DERMATOP [Concomitant]
     Active Substance: PREDNICARBATE
     Dosage: UNK
     Dates: start: 20180626, end: 20180807
  15. CANDESARTAN. [Concomitant]
     Active Substance: CANDESARTAN
     Dosage: UNK
     Dates: start: 2013
  16. VITAMIN D3 [Concomitant]
     Active Substance: CHOLECALCIFEROL
     Dosage: UNK
     Dates: start: 2014
  17. MELATONIN [Concomitant]
     Active Substance: MELATONIN
     Dosage: UNK
     Dates: start: 2014
  18. VOMEX A [Concomitant]
     Active Substance: DIMENHYDRINATE
     Dosage: UNK
     Dates: start: 20180726, end: 201808
  19. DELPHINIUM STAPHISAGRIA W/LYCOPODIUM CLAVATUM [Concomitant]
     Dosage: UNK
     Dates: start: 2014
  20. STRYCHNOS NUX-VOMICA [Concomitant]
     Active Substance: HERBALS\STRYCHNOS NUX-VOMICA SEED
     Dosage: UNK
     Dates: start: 2014

REACTIONS (2)
  - Death [Fatal]
  - Febrile neutropenia [Recovered/Resolved]

NARRATIVE: CASE EVENT DATE: 20180726
